FAERS Safety Report 4439800-0 (Version None)
Quarter: 2004Q3

REPORT INFORMATION
  Report Type: 
  Country: None (occurrence: None)
  Receive Date: 20040831
  Receipt Date: 20040818
  Transmission Date: 20050211
  Serious: Yes (Death, Other)
  Sender: FDA-Public Use
  Company Number: HQWYE452320AUG04

PATIENT
  Age: 53 Year
  Sex: Female
  Weight: 122.13 kg

DRUGS (9)
  1. ZOSYN [Suspect]
     Indication: PSEUDOMONAS INFECTION
     Dosage: 3.375 G EVERY 8-12 HOURS, INTRAVENOUS
     Route: 042
     Dates: start: 20040714, end: 20040720
  2. ZOSYN [Suspect]
     Indication: STAPHYLOCOCCAL INFECTION
     Dosage: 3.375 G EVERY 8-12 HOURS, INTRAVENOUS
     Route: 042
     Dates: start: 20040714, end: 20040720
  3. ZOSYN [Suspect]
     Indication: PSEUDOMONAS INFECTION
     Dosage: 3.375 G EVERY 8-12 HOURS, INTRAVENOUS
     Route: 042
     Dates: start: 20040730, end: 20040802
  4. ZOSYN [Suspect]
     Indication: STAPHYLOCOCCAL INFECTION
     Dosage: 3.375 G EVERY 8-12 HOURS, INTRAVENOUS
     Route: 042
     Dates: start: 20040730, end: 20040802
  5. METRONIDAZOLE [Concomitant]
  6. MORPHINE SULFATE [Concomitant]
  7. VANCOMYCIN [Concomitant]
  8. AMIKACIN [Concomitant]
  9. CORDARONE [Concomitant]

REACTIONS (2)
  - CLOSTRIDIAL INFECTION [None]
  - TOXIC EPIDERMAL NECROLYSIS [None]
